FAERS Safety Report 21994043 (Version 1)
Quarter: 2023Q1

REPORT INFORMATION
  Report Type: Spontaneous
  Country: ES (occurrence: None)
  Receive Date: 20230215
  Receipt Date: 20230215
  Transmission Date: 20230418
  Serious: Yes (Hospitalization)
  Sender: FDA-Public Use
  Company Number: 2023A038318

PATIENT
  Age: 89 Year
  Sex: Female
  Weight: 83.1 kg

DRUGS (9)
  1. CANDESARTAN [Suspect]
     Active Substance: CANDESARTAN
     Dosage: 8MG 1-0-0
  2. OMEPRAZOLE [Suspect]
     Active Substance: OMEPRAZOLE
     Dosage: 20 MG 1-0-0
  3. PREDNISONE [Suspect]
     Active Substance: PREDNISONE
     Indication: Polymyalgia rheumatica
     Route: 048
     Dates: start: 20220816
  4. FUROSEMIDE [Suspect]
     Active Substance: FUROSEMIDE
     Dosage: 40MG 1-0-0-0 (FOR THE PAST YEAR)
  5. ALLOPURINOL [Suspect]
     Active Substance: ALLOPURINOL
     Dosage: 100MG 0-1-0
  6. LYRICA [Suspect]
     Active Substance: PREGABALIN
     Dosage: 25MG 0-0-1
  7. CELECOXIB [Suspect]
     Active Substance: CELECOXIB
     Dosage: CELECOXIB 0-1-0
  8. ACTONEL [Suspect]
     Active Substance: RISEDRONATE SODIUM
     Dosage: ACTONEL WEEKLY 35MG
  9. CALCIUM CARBONATE [Concomitant]
     Active Substance: CALCIUM CARBONATE
     Dosage: MASTICAL D 0-0.5-0.5

REACTIONS (1)
  - Cardiac failure congestive [Recovering/Resolving]

NARRATIVE: CASE EVENT DATE: 20220919
